FAERS Safety Report 15314602 (Version 1)
Quarter: 2018Q3

REPORT INFORMATION
  Report Type: Spontaneous
  Country: US (occurrence: US)
  Receive Date: 20180814
  Receipt Date: 20180814
  Transmission Date: 20181010
  Serious: Yes (Hospitalization)
  Sender: FDA-Public Use
  Company Number: None

PATIENT
  Age: 59 Year
  Sex: Female
  Weight: 64.2 kg

DRUGS (1)
  1. YESCARTA [Suspect]
     Active Substance: AXICABTAGENE CILOLEUCEL
     Indication: DIFFUSE LARGE B-CELL LYMPHOMA
     Route: 042
     Dates: start: 20180418

REACTIONS (7)
  - Hypotension [None]
  - Vomiting [None]
  - Bacterial infection [None]
  - Confusional state [None]
  - Febrile neutropenia [None]
  - Culture urine positive [None]
  - Feeling abnormal [None]

NARRATIVE: CASE EVENT DATE: 20180420
